FAERS Safety Report 16073182 (Version 1)
Quarter: 2019Q1

REPORT INFORMATION
  Report Type: Spontaneous
  Country: JP (occurrence: JP)
  Receive Date: 20190314
  Receipt Date: 20190314
  Transmission Date: 20190418
  Serious: Yes (Other)
  Sender: FDA-Public Use
  Company Number: JP-PFIZER INC-2019112455

PATIENT
  Age: 68 Year
  Sex: Female
  Weight: 45.7 kg

DRUGS (12)
  1. CAMPTO [Suspect]
     Active Substance: IRINOTECAN
     Dosage: 160 MG, 1X/DAY (2ND CYCLE)
     Route: 041
     Dates: start: 20181109, end: 20181109
  2. MINOCYCLINE HYDROCHLORIDE. [Concomitant]
     Active Substance: MINOCYCLINE HYDROCHLORIDE
     Dosage: UNK
  3. DECADRON [DEXAMETHASONE SODIUM PHOSPHATE] [Concomitant]
     Dosage: UNK
     Dates: start: 20180922, end: 20181109
  4. RESTAMIN [DIPHENHYDRAMINE HYDROCHLORIDE] [Concomitant]
     Dosage: UNK
  5. ERBITUX [Suspect]
     Active Substance: CETUXIMAB
     Indication: COLON CANCER
     Dosage: 270 MG, 1X/DAY (270 MG/BODY)
     Route: 041
     Dates: start: 20180922, end: 20180922
  6. ERBITUX [Suspect]
     Active Substance: CETUXIMAB
     Dosage: 270 MG, 1X/DAY
     Route: 041
     Dates: start: 20181109, end: 20181109
  7. TAKECAB [Concomitant]
     Active Substance: VONOPRAZAN FUMURATE
     Dosage: UNK
  8. CAMPTO [Suspect]
     Active Substance: IRINOTECAN
     Indication: COLON CANCER
     Dosage: 160 MG, 1X/DAY (160 MG/BODY (111.3 MG/M2))
     Route: 041
     Dates: start: 20180922, end: 20180922
  9. DECADRON [Concomitant]
     Active Substance: DEXAMETHASONE
     Dosage: UNK
  10. ALOXI [Concomitant]
     Active Substance: PALONOSETRON HYDROCHLORIDE
     Dosage: UNK
     Dates: start: 20180922, end: 20181109
  11. EMEND [Concomitant]
     Active Substance: APREPITANT
     Dosage: UNK
     Dates: start: 20180922
  12. LIPACREON [Concomitant]
     Active Substance: PANCRELIPASE
     Dosage: UNK

REACTIONS (1)
  - Hepatitis B reactivation [Not Recovered/Not Resolved]

NARRATIVE: CASE EVENT DATE: 20181130
